FAERS Safety Report 10697351 (Version 2)
Quarter: 2015Q1

REPORT INFORMATION
  Report Type: Spontaneous
  Country: US (occurrence: US)
  Receive Date: 20150108
  Receipt Date: 20150126
  Transmission Date: 20150721
  Serious: Yes (Other)
  Sender: FDA-Public Use
  Company Number: US-MYLANLABS-2015M1000395

PATIENT

DRUGS (8)
  1. CLINDAMYCIN [Suspect]
     Active Substance: CLINDAMYCIN\CLINDAMYCIN PHOSPHATE
     Dosage: 300 MG, TID FOR 10 DAYS
     Route: 048
  2. AMPICILLIN AND SULBACTAM [Suspect]
     Active Substance: AMPICILLIN SODIUM\SULBACTAM SODIUM
     Dosage: FOR 2 WEEKS
  3. AMPICILLIN AND SULBACTAM [Suspect]
     Active Substance: AMPICILLIN SODIUM\SULBACTAM SODIUM
     Dosage: FOR 2 DAYS
  4. VANCOMYCIN [Suspect]
     Active Substance: VANCOMYCIN
     Indication: LYMPHADENITIS
     Dosage: FOR 3 DAYS
  5. VANCOMYCIN [Suspect]
     Active Substance: VANCOMYCIN
     Indication: CELLULITIS PHARYNGEAL
  6. CEFTRIAXONE. [Suspect]
     Active Substance: CEFTRIAXONE
     Indication: LYMPHADENITIS
     Dosage: FOR 3 DAYS
  7. AMOXICILLIN. [Suspect]
     Active Substance: AMOXICILLIN
     Dosage: UNK
  8. CEFTRIAXONE. [Suspect]
     Active Substance: CEFTRIAXONE
     Indication: CELLULITIS PHARYNGEAL

REACTIONS (5)
  - Dehydration [None]
  - Chest pain [None]
  - Drug-induced liver injury [Not Recovered/Not Resolved]
  - Anaemia [None]
  - Cholestasis [Not Recovered/Not Resolved]
